FAERS Safety Report 6139922-2 (Version None)
Quarter: 2009Q1

REPORT INFORMATION
  Report Type: 
  Country: None (occurrence: None)
  Receive Date: 20090331
  Receipt Date: 20090331
  Transmission Date: 20090719
  Serious: No
  Sender: FDA-Public Use
  Company Number: None

PATIENT
  Sex: Female

DRUGS (1)
  1. LATISSE, 3 ML, ALLERGAN [Suspect]

REACTIONS (5)
  - EYE DISCHARGE [None]
  - EYE PAIN [None]
  - EYELID MARGIN CRUSTING [None]
  - OCULAR HYPERAEMIA [None]
  - VISION BLURRED [None]
